FAERS Safety Report 8553882 (Version 2)
Quarter: 2013Q1

REPORT INFORMATION
  Report Type: Spontaneous
  Country: IT (occurrence: None)
  Receive Date: 20120501
  Receipt Date: 20121114
  Transmission Date: 20140127
  Serious: No
  Sender: FDA-Public Use
  Company Number: 2012SP020783

PATIENT
  Age: 3 Year
  Sex: Male

DRUGS (2)
  1. CEFTIBUTEN [Suspect]
     Indication: EAR INFECTION
     Dosage: 135 MG;PO;QD
     Route: 048
     Dates: start: 20120331, end: 20120403
  2. TACHIPIRINA (ACETAMINOPHEN) [Concomitant]

REACTIONS (1)
  - Hyperhidrosis [None]
